FAERS Safety Report 8057573 (Version 5)
Quarter: 2013Q1

REPORT INFORMATION
  Report Type: Spontaneous
  Country: US (occurrence: US)
  Receive Date: 20110727
  Receipt Date: 20130109
  Transmission Date: 20140127
  Serious: Yes (Hospitalization, Other)
  Sender: FDA-Public Use
  Company Number: US-ELI_LILLY_AND_COMPANY-US201106001800

PATIENT
  Age: 64 Year
  Sex: Female

DRUGS (23)
  1. FORTEO [Suspect]
     Indication: OSTEOPOROSIS
     Dosage: 20 U, QD
  2. FORTEO [Suspect]
     Dosage: 20 U, QD
  3. FORTEO [Suspect]
     Dosage: 20 U, QD
  4. FORTEO [Suspect]
     Dosage: 20 U, QD
  5. FORTEO [Suspect]
     Dosage: 20 UG, QD
  6. EVISTA [Suspect]
     Dosage: 60 MG, UNK
  7. VITAMIN D [Concomitant]
     Dosage: 5000 IU, BID
     Route: 048
  8. ESTRACE [Concomitant]
     Dosage: 2 MG, QD
  9. XOPENEX [Concomitant]
     Route: 055
  10. OXYCONTIN [Concomitant]
     Dosage: 40 MG, TID
  11. ROXICODONE [Concomitant]
     Dosage: 30 MG, PRN
  12. PROTONIX [Concomitant]
     Dosage: 40 MG, QD
  13. POTASSIUM CHLORIDE [Concomitant]
     Dosage: UNK UNK, QD
  14. PREDNISONE [Concomitant]
     Dosage: 7.5 MG, QD
  15. PREDNISONE [Concomitant]
     Dosage: 5 MG, QD
  16. CRESTOR [Concomitant]
     Dosage: 5 MG, QD
  17. SPIRIVA [Concomitant]
     Dosage: UNK UNK, QD
     Route: 055
  18. AMBIEN [Concomitant]
     Indication: SLEEP DISORDER
     Dosage: 10 MG, QD
  19. FUROSEMIDE [Concomitant]
     Indication: FLUID RETENTION
  20. DECADRON                           /00016001/ [Concomitant]
  21. VITAMIN B12 [Concomitant]
  22. VALIUM [Concomitant]
     Dosage: 5 MG, TID
  23. CALTRATE [Concomitant]
     Dosage: 600 MG, UNKNOWN

REACTIONS (35)
  - Fluid retention [Recovered/Resolved]
  - Chronic obstructive pulmonary disease [Recovered/Resolved]
  - Sinusitis [Recovered/Resolved]
  - Spinal fracture [Unknown]
  - Osteoarthritis [Recovered/Resolved]
  - Wound secretion [Unknown]
  - Abdominal hernia [Unknown]
  - Fatigue [Not Recovered/Not Resolved]
  - Contusion [Unknown]
  - Heart rate increased [Not Recovered/Not Resolved]
  - Vein disorder [Unknown]
  - Abdominal pain upper [Unknown]
  - Abdominal pain [Not Recovered/Not Resolved]
  - Influenza like illness [Not Recovered/Not Resolved]
  - Injection site bruising [Not Recovered/Not Resolved]
  - Abdominal distension [Unknown]
  - Abdominal discomfort [Unknown]
  - Teeth brittle [Unknown]
  - Bone pain [Unknown]
  - Adrenal insufficiency [Not Recovered/Not Resolved]
  - Cushing^s syndrome [Unknown]
  - Memory impairment [Unknown]
  - Nausea [Unknown]
  - Oxygen saturation decreased [Unknown]
  - Vertigo [Unknown]
  - Breast mass [Unknown]
  - Vision blurred [Unknown]
  - Gastrooesophageal reflux disease [Unknown]
  - Malaise [Unknown]
  - Dyspepsia [Unknown]
  - Burning sensation [Unknown]
  - Dizziness [Unknown]
  - Dyspnoea [Unknown]
  - Gait disturbance [Unknown]
  - Feeling abnormal [Unknown]
